FAERS Safety Report 7571635-2 (Version None)
Quarter: 2011Q2

REPORT INFORMATION
  Report Type: 
  Country: None (occurrence: None)
  Receive Date: 20110624
  Receipt Date: 20110621
  Transmission Date: 20111010
  Serious: Yes (Hospitalization)
  Sender: FDA-Public Use
  Company Number: AU-MERCK-1106USA02936

PATIENT
  Sex: Male

DRUGS (2)
  1. VYTORIN [Suspect]
     Route: 048
  2. VYTORIN [Suspect]
     Indication: HYPERCHOLESTEROLAEMIA
     Route: 048

REACTIONS (1)
  - CEREBRAL HAEMORRHAGE [None]
